FAERS Safety Report 4438651-0 (Version None)
Quarter: 2004Q3

REPORT INFORMATION
  Report Type: 
  Country: None (occurrence: None)
  Receive Date: 20040728
  Receipt Date: 20040227
  Transmission Date: 20050211
  Serious: No
  Sender: FDA-Public Use
  Company Number: USA040360429

PATIENT
  Age: 9 Year
  Sex: Male
  Weight: 44 kg

DRUGS (5)
  1. STRATTERA [Suspect]
     Indication: ATTENTION DEFICIT/HYPERACTIVITY DISORDER
     Dosage: 25  MG/2 DAY
     Dates: start: 20030101
  2. CONCERTA [Concomitant]
  3. ADDERALL 10 [Concomitant]
  4. TENEX [Concomitant]
  5. IRON SUPPLEMENT [Concomitant]

REACTIONS (4)
  - KERATOCONJUNCTIVITIS SICCA [None]
  - MONONUCLEOSIS SYNDROME [None]
  - PALLOR [None]
  - WEIGHT DECREASED [None]
